FAERS Safety Report 5305930-4 (Version None)
Quarter: 2007Q2

REPORT INFORMATION
  Report Type: 
  Country: None (occurrence: None)
  Receive Date: 20070424
  Receipt Date: 20070417
  Transmission Date: 20071010
  Serious: Yes (Death, Other)
  Sender: FDA-Public Use
  Company Number: GB-GLAXOSMITHKLINE-B0467656A

PATIENT
  Age: 84 Year
  Sex: Male

DRUGS (5)
  1. ROPINIROLE HCL [Suspect]
     Indication: RESTLESS LEGS SYNDROME
     Dosage: 1.25MG PER DAY
     Route: 048
     Dates: start: 20061201
  2. ASPIRIN [Concomitant]
  3. BENDROFLUAZIDE [Concomitant]
     Dosage: 2.5MG PER DAY
  4. CO-BENELDOPA [Concomitant]
  5. TOLTERODINE [Concomitant]
     Dosage: 2MG PER DAY

REACTIONS (4)
  - ACUTE MYOCARDIAL INFARCTION [None]
  - GASTROINTESTINAL HAEMORRHAGE [None]
  - RENAL FAILURE ACUTE [None]
  - RHABDOMYOLYSIS [None]
